FAERS Safety Report 16814308 (Version 1)
Quarter: 2019Q3

REPORT INFORMATION
  Report Type: Spontaneous
  Country: GB (occurrence: GB)
  Receive Date: 20190917
  Receipt Date: 20190917
  Transmission Date: 20191005
  Serious: Yes (Life-Threatening, Hospitalization)
  Sender: FDA-Public Use
  Company Number: GB-JNJFOC-20190909250

PATIENT
  Age: 52 Year
  Sex: Male

DRUGS (1)
  1. XARELTO [Suspect]
     Active Substance: RIVAROXABAN
     Indication: PULMONARY EMBOLISM
     Dosage: UNK
     Route: 048

REACTIONS (6)
  - Cerebral infarction [Unknown]
  - Pulmonary embolism [Unknown]
  - Treatment noncompliance [Unknown]
  - Haemoptysis [Unknown]
  - Headache [Unknown]
  - Cerebral artery thrombosis [Unknown]
